FAERS Safety Report 9868540 (Version 2)
Quarter: 2014Q1

REPORT INFORMATION
  Report Type: Spontaneous
  Country: CZ (occurrence: CZ)
  Receive Date: 20140204
  Receipt Date: 20140212
  Transmission Date: 20141002
  Serious: Yes (Other)
  Sender: FDA-Public Use
  Company Number: CZ-PFIZER INC-2014028943

PATIENT
  Age: 35 Year
  Sex: Female

DRUGS (7)
  1. IBUPROFEN [Suspect]
     Dosage: UNK
  2. TRAMADOL HCL [Suspect]
     Indication: BACK PAIN
     Dosage: 1500-2250 MG, DAILY
  3. TRAMADOL HCL [Suspect]
     Indication: HEADACHE
  4. TRAMADOL HCL [Suspect]
     Indication: TOOTHACHE
  5. TRAMADOL HCL [Suspect]
     Indication: ANXIETY
  6. TRAMADOL HCL [Suspect]
     Indication: EMOTIONAL DISORDER
  7. TRAMADOL HCL [Suspect]
     Indication: STRESS

REACTIONS (2)
  - Overdose [Unknown]
  - Drug dependence [Unknown]
